FAERS Safety Report 12364715 (Version 1)
Quarter: 2016Q2

REPORT INFORMATION
  Report Type: Report from Study
  Country: US (occurrence: US)
  Receive Date: 20160513
  Receipt Date: 20160513
  Transmission Date: 20160815
  Serious: Yes (Hospitalization)
  Sender: FDA-Public Use
  Company Number: US-BAXTER-2016BAX024236

PATIENT
  Age: 62 Year
  Sex: Female

DRUGS (12)
  1. CYCLOPHOSPHAMIDE FOR INJECTION, USP [Suspect]
     Active Substance: CYCLOPHOSPHAMIDE
     Dosage: 1400 (UNITS NOT REPORTED), MOST RECENT DOSE PRIOR TO THE EVENT
     Route: 042
     Dates: start: 20160414
  2. DOXORUBICIN [Suspect]
     Active Substance: DOXORUBICIN
     Indication: DIFFUSE LARGE B-CELL LYMPHOMA
     Route: 042
     Dates: start: 20160122
  3. CYCLOPHOSPHAMIDE FOR INJECTION, USP [Suspect]
     Active Substance: CYCLOPHOSPHAMIDE
     Indication: DIFFUSE LARGE B-CELL LYMPHOMA
     Route: 042
     Dates: start: 20160122
  4. RITUXIMAB [Suspect]
     Active Substance: RITUXIMAB
     Dosage: 700 (UNITS NOT REPORTED), MOST RECENT DOSE PRIOR TO THE EVENT
     Route: 042
     Dates: start: 20160414
  5. GDC-0199 [Suspect]
     Active Substance: VENETOCLAX
     Indication: DIFFUSE LARGE B-CELL LYMPHOMA
     Route: 048
     Dates: start: 20160125
  6. PREDNISONE. [Suspect]
     Active Substance: PREDNISONE
     Dosage: MOST RECENT DOSE PRIOR TO THE EVENT
     Route: 048
     Dates: start: 20160418
  7. RITUXIMAB [Suspect]
     Active Substance: RITUXIMAB
     Indication: DIFFUSE LARGE B-CELL LYMPHOMA
     Route: 042
     Dates: start: 20160122
  8. DOXORUBICIN [Suspect]
     Active Substance: DOXORUBICIN
     Dosage: 90 (UNITS NOT REPORTED), MOST RECENT DOSE PRIOR TO THE EVENT
     Route: 042
     Dates: start: 20160414
  9. VINCRISTINE [Suspect]
     Active Substance: VINCRISTINE
     Dosage: 2 (UNITS NOT REPORTED), MOST RECENT DOSE PRIOR TO THE EVENT
     Route: 042
     Dates: start: 20160414
  10. GDC-0199 [Suspect]
     Active Substance: VENETOCLAX
     Dosage: MOST RECENT DOSE PRIOR TO THE EVENT
     Route: 048
     Dates: start: 20160421
  11. VINCRISTINE [Suspect]
     Active Substance: VINCRISTINE
     Indication: DIFFUSE LARGE B-CELL LYMPHOMA
     Route: 042
     Dates: start: 20160122
  12. PREDNISONE. [Suspect]
     Active Substance: PREDNISONE
     Indication: DIFFUSE LARGE B-CELL LYMPHOMA
     Dosage: DAY 1-5
     Route: 048
     Dates: start: 20160122

REACTIONS (2)
  - Neutropenia [Unknown]
  - Syncope [Recovering/Resolving]

NARRATIVE: CASE EVENT DATE: 20160422
